FAERS Safety Report 15814306 (Version 1)
Quarter: 2019Q1

REPORT INFORMATION
  Report Type: Spontaneous
  Country: US (occurrence: US)
  Receive Date: 20190111
  Receipt Date: 20190111
  Transmission Date: 20190417
  Serious: No
  Sender: FDA-Public Use
  Company Number: US-LEADING PHARMA, LLC-2061124

PATIENT
  Age: 64 Year
  Sex: Female
  Weight: 95.46 kg

DRUGS (1)
  1. FOLIC ACID. [Suspect]
     Active Substance: FOLIC ACID
     Indication: EXTRAPYRAMIDAL DISORDER
     Route: 048

REACTIONS (1)
  - Hepatic enzyme increased [Recovered/Resolved]
